FAERS Safety Report 17679211 (Version 2)
Quarter: 2020Q2

REPORT INFORMATION
  Report Type: Report from Study
  Country: US (occurrence: US)
  Receive Date: 20200417
  Receipt Date: 20200421
  Transmission Date: 20200714
  Serious: Yes (Hospitalization)
  Sender: FDA-Public Use
  Company Number: US-JNJFOC-20200328138

PATIENT
  Age: 60 Year
  Sex: Female

DRUGS (43)
  1. REMICADE [Suspect]
     Active Substance: INFLIXIMAB
     Route: 042
     Dates: start: 20180109, end: 20180109
  2. REMICADE [Suspect]
     Active Substance: INFLIXIMAB
     Route: 042
     Dates: start: 20180314, end: 20180314
  3. REMICADE [Suspect]
     Active Substance: INFLIXIMAB
     Route: 042
     Dates: start: 20180725, end: 20180725
  4. ACETAMINOPHEN. [Concomitant]
     Active Substance: ACETAMINOPHEN
     Dosage: ONCE (ONE TIME INTERVENTION)
     Route: 048
     Dates: start: 20190305
  5. REMICADE [Suspect]
     Active Substance: INFLIXIMAB
     Route: 042
     Dates: start: 20180502, end: 20180502
  6. REMICADE [Suspect]
     Active Substance: INFLIXIMAB
     Route: 042
     Dates: start: 20190122, end: 20190122
  7. ZYRTEC [Concomitant]
     Active Substance: CETIRIZINE HYDROCHLORIDE
     Dosage: ONCE (ONE TIME INTERVENTION)
     Route: 048
     Dates: start: 20180906
  8. REMICADE [Suspect]
     Active Substance: INFLIXIMAB
     Route: 042
     Dates: start: 20180613, end: 20180613
  9. ZYRTEC [Concomitant]
     Active Substance: CETIRIZINE HYDROCHLORIDE
     Indication: PREMEDICATION
     Dosage: ONCE (ONE TIME INTERVENTION)
     Route: 048
     Dates: start: 20171017
  10. ZYRTEC [Concomitant]
     Active Substance: CETIRIZINE HYDROCHLORIDE
     Dosage: ONCE (ONE TIME INTERVENTION)
     Route: 048
     Dates: start: 20180502
  11. ZYRTEC [Concomitant]
     Active Substance: CETIRIZINE HYDROCHLORIDE
     Dosage: ONCE (ONE TIME INTERVENTION)
     Route: 048
     Dates: start: 20181017
  12. ZYRTEC [Concomitant]
     Active Substance: CETIRIZINE HYDROCHLORIDE
     Dosage: ONCE (ONE TIME INTERVENTION)
     Route: 048
     Dates: start: 20181212
  13. ACETAMINOPHEN. [Concomitant]
     Active Substance: ACETAMINOPHEN
     Dosage: ONCE (ONE TIME INTERVENTION)
     Route: 048
     Dates: start: 20180314
  14. ACETAMINOPHEN. [Concomitant]
     Active Substance: ACETAMINOPHEN
     Dosage: ONCE (ONE TIME INTERVENTION)
     Route: 048
     Dates: start: 20180613
  15. ACETAMINOPHEN. [Concomitant]
     Active Substance: ACETAMINOPHEN
     Dosage: ONCE (ONE TIME INTERVENTION)
     Route: 048
     Dates: start: 20180725
  16. ACETAMINOPHEN. [Concomitant]
     Active Substance: ACETAMINOPHEN
     Dosage: ONCE (ONE TIME INTERVENTION)
     Route: 048
     Dates: start: 20181017
  17. ACETAMINOPHEN. [Concomitant]
     Active Substance: ACETAMINOPHEN
     Dosage: ONCE (ONE TIME INTERVENTION)
     Route: 048
     Dates: start: 20190122
  18. CLARITIN [Concomitant]
     Active Substance: LORATADINE
     Dosage: ONCE (ONE TIME INTERVENTION)
     Route: 048
     Dates: start: 20190122
  19. DULOXETINE. [Concomitant]
     Active Substance: DULOXETINE
     Indication: DEPRESSION
     Route: 048
     Dates: start: 201605
  20. REMICADE [Suspect]
     Active Substance: INFLIXIMAB
     Indication: RHEUMATOID ARTHRITIS
     Route: 042
     Dates: start: 20171003, end: 20171003
  21. REMICADE [Suspect]
     Active Substance: INFLIXIMAB
     Route: 042
     Dates: start: 20180906, end: 20180906
  22. REMICADE [Suspect]
     Active Substance: INFLIXIMAB
     Route: 042
     Dates: start: 20181212, end: 20181212
  23. ZYRTEC [Concomitant]
     Active Substance: CETIRIZINE HYDROCHLORIDE
     Dosage: ONCE (ONE TIME INTERVENTION)
     Route: 048
     Dates: start: 20180725
  24. ZYRTEC [Concomitant]
     Active Substance: CETIRIZINE HYDROCHLORIDE
  25. CLARITIN [Concomitant]
     Active Substance: LORATADINE
     Indication: PREMEDICATION
     Dosage: ONCE (ONE TIME INTERVENTION)
     Route: 048
     Dates: start: 20180314
  26. REMICADE [Suspect]
     Active Substance: INFLIXIMAB
     Route: 042
     Dates: start: 20171017, end: 20171017
  27. REMICADE [Suspect]
     Active Substance: INFLIXIMAB
     Route: 042
     Dates: start: 20171114, end: 20171114
  28. REMICADE [Suspect]
     Active Substance: INFLIXIMAB
     Route: 042
     Dates: start: 20181017, end: 20181017
  29. REMICADE [Suspect]
     Active Substance: INFLIXIMAB
     Route: 042
     Dates: start: 20190305, end: 20190305
  30. ZYRTEC [Concomitant]
     Active Substance: CETIRIZINE HYDROCHLORIDE
     Dosage: ONCE (ONE TIME INTERVENTION)
     Route: 048
     Dates: start: 20180613
  31. ZYRTEC [Concomitant]
     Active Substance: CETIRIZINE HYDROCHLORIDE
     Dosage: ONCE (ONE TIME INTERVENTION)
     Route: 048
     Dates: start: 20190423
  32. REMICADE [Suspect]
     Active Substance: INFLIXIMAB
     Route: 042
     Dates: start: 20190423, end: 20190423
  33. ACETAMINOPHEN. [Concomitant]
     Active Substance: ACETAMINOPHEN
     Dosage: ONCE (ONE TIME INTERVENTION)
     Route: 048
     Dates: start: 20180906
  34. ZYRTEC [Concomitant]
     Active Substance: CETIRIZINE HYDROCHLORIDE
     Dosage: ONCE (ONE TIME INTERVENTION)
     Route: 048
     Dates: start: 20171114
  35. ZYRTEC [Concomitant]
     Active Substance: CETIRIZINE HYDROCHLORIDE
     Dosage: ONCE (ONE TIME INTERVENTION)
     Route: 048
     Dates: start: 20180109
  36. ACETAMINOPHEN. [Concomitant]
     Active Substance: ACETAMINOPHEN
     Indication: PREMEDICATION
     Dosage: ONCE (ONE TIME INTERVENTION)
     Route: 048
     Dates: start: 20171017
  37. ACETAMINOPHEN. [Concomitant]
     Active Substance: ACETAMINOPHEN
     Dosage: ONCE (ONE TIME INTERVENTION)
     Route: 048
     Dates: start: 20171114
  38. ACETAMINOPHEN. [Concomitant]
     Active Substance: ACETAMINOPHEN
     Dosage: ONCE (ONE TIME INTERVENTION)
     Route: 048
     Dates: start: 20180502
  39. ACETAMINOPHEN. [Concomitant]
     Active Substance: ACETAMINOPHEN
     Dosage: ONCE (ONE TIME INTERVENTION)
     Route: 048
     Dates: start: 20181212
  40. ROPINIROLE HYDROCHLORIDE. [Concomitant]
     Active Substance: ROPINIROLE HYDROCHLORIDE
     Indication: PAIN IN EXTREMITY
     Route: 048
     Dates: start: 2016
  41. ZYRTEC [Concomitant]
     Active Substance: CETIRIZINE HYDROCHLORIDE
     Dosage: ONCE (ONE TIME INTERVENTION)
     Route: 048
     Dates: start: 20190305
  42. ACETAMINOPHEN. [Concomitant]
     Active Substance: ACETAMINOPHEN
     Dosage: ONCE (ONE TIME INTERVENTION)
     Route: 048
     Dates: start: 20180109
  43. ACETAMINOPHEN. [Concomitant]
     Active Substance: ACETAMINOPHEN
     Dosage: ONCE (ONE TIME INTERVENTION)
     Route: 048
     Dates: start: 20190423

REACTIONS (1)
  - Joint injury [Recovered/Resolved]

NARRATIVE: CASE EVENT DATE: 201906
